FAERS Safety Report 10420754 (Version 1)
Quarter: 2014Q3

REPORT INFORMATION
  Report Type: Spontaneous
  Country: US (occurrence: None)
  Receive Date: 20140708
  Receipt Date: 20140708
  Transmission Date: 20150326
  Serious: Yes (Other)
  Sender: FDA-Public Use
  Company Number: 1275130-2

PATIENT
  Age: 48 Year
  Sex: Female
  Weight: 45.81 kg

DRUGS (3)
  1. NIX [Suspect]
     Active Substance: PERMETHRIN
     Indication: LICE INFESTATION
     Dosage: TOPICAL APPLICATION
     Route: 061
     Dates: start: 20131029
  2. SYNTHROID [Concomitant]
     Active Substance: LEVOTHYROXINE SODIUM
  3. CALCIUM SUPPLEMENT [Concomitant]
     Active Substance: CALCIUM

REACTIONS (2)
  - Nausea [None]
  - Dizziness [None]

NARRATIVE: CASE EVENT DATE: 20131029
